FAERS Safety Report 14805650 (Version 2)
Quarter: 2018Q2

REPORT INFORMATION
  Report Type: Not Available
  Country: US (occurrence: US)
  Receive Date: 20180425
  Receipt Date: 20180515
  Transmission Date: 20180711
  Serious: Yes (Hospitalization)
  Sender: FDA-Public Use
  Company Number: US-NEUROCRINE BIOSCIENCES INC.-2018NBI01153

PATIENT
  Sex: Female

DRUGS (13)
  1. VISTARIL [Concomitant]
     Active Substance: HYDROXYZINE PAMOATE
  2. VITAMIN D [Concomitant]
     Active Substance: CHOLECALCIFEROL
  3. COGENTIN [Concomitant]
     Active Substance: BENZTROPINE MESYLATE
  4. TRAZODONE [Concomitant]
     Active Substance: TRAZODONE HYDROCHLORIDE
  5. INGREZZA [Suspect]
     Active Substance: VALBENAZINE
     Indication: PRODUCT USED FOR UNKNOWN INDICATION
     Route: 048
     Dates: start: 20171107, end: 20171114
  6. CLOZAPINE. [Concomitant]
     Active Substance: CLOZAPINE
  7. MIRAPEX [Concomitant]
     Active Substance: PRAMIPEXOLE DIHYDROCHLORIDE
  8. INGREZZA [Suspect]
     Active Substance: VALBENAZINE
     Route: 048
     Dates: start: 20171115
  9. LEVOTHYROXINE. [Concomitant]
     Active Substance: LEVOTHYROXINE
  10. OXYCODONE [Concomitant]
     Active Substance: OXYCODONE
  11. SEROQUEL [Concomitant]
     Active Substance: QUETIAPINE FUMARATE
  12. DEPAKOTE [Concomitant]
     Active Substance: DIVALPROEX SODIUM
  13. IRON [Concomitant]
     Active Substance: IRON

REACTIONS (3)
  - Cellulitis [Unknown]
  - Migraine [Unknown]
  - Pneumonia [Unknown]

NARRATIVE: CASE EVENT DATE: 2018
